FAERS Safety Report 6042033-8 (Version None)
Quarter: 2009Q1

REPORT INFORMATION
  Report Type: 
  Country: None (occurrence: None)
  Receive Date: 20090116
  Receipt Date: 20090108
  Transmission Date: 20090719
  Serious: Yes (Other)
  Sender: FDA-Public Use
  Company Number: GB-TEVA-183720ISR

PATIENT
  Age: 79 Year
  Sex: Female
  Weight: 102 kg

DRUGS (1)
  1. BUMETANIDE [Suspect]
     Indication: HYPERTENSION
     Route: 048
     Dates: start: 20081201, end: 20081212

REACTIONS (1)
  - GOUT [None]
